FAERS Safety Report 4424027-9 (Version None)
Quarter: 2004Q3

REPORT INFORMATION
  Report Type: 
  Country: None (occurrence: None)
  Receive Date: 20040812
  Receipt Date: 20040802
  Transmission Date: 20050211
  Serious: Yes (Disabling)
  Sender: FDA-Public Use
  Company Number: PHBS2004IT10257

PATIENT
  Age: 32 Year
  Sex: Male

DRUGS (7)
  1. CYCLOSPORINE [Suspect]
     Indication: RENAL TRANSPLANT
     Dosage: 375 MG, BID
     Dates: start: 19950101
  2. CYCLOSPORINE [Suspect]
     Dosage: 150 MG, BID
  3. CYCLOSPORINE [Suspect]
     Dosage: 100 MG, BID
  4. AZATHIOPRINE [Concomitant]
     Indication: RENAL TRANSPLANT
     Dosage: 100 MG/D
     Dates: start: 19950101
  5. METHYLPREDNISOLONE [Concomitant]
     Indication: RENAL TRANSPLANT
     Dosage: 24 MG/D
     Dates: start: 19950101
  6. METHYLPREDNISOLONE [Concomitant]
     Dosage: 4 MG/D
  7. ANTITHYMOCYTE IMMUNOGLOBULIN [Concomitant]
     Indication: RENAL TRANSPLANT

REACTIONS (1)
  - DEAFNESS NEUROSENSORY [None]
